FAERS Safety Report 15088720 (Version 1)
Quarter: 2018Q2

REPORT INFORMATION
  Report Type: Spontaneous
  Country: US (occurrence: US)
  Receive Date: 20180629
  Receipt Date: 20180629
  Transmission Date: 20180711
  Serious: No
  Sender: FDA-Public Use
  Company Number: US-PFIZER INC-2018262441

PATIENT
  Age: 32 Year
  Sex: Female

DRUGS (1)
  1. METHOTREXATE SODIUM. [Suspect]
     Active Substance: METHOTREXATE SODIUM
     Dosage: 0.6 ML, WEEKLY
     Dates: end: 201006

REACTIONS (5)
  - Fear of injection [Unknown]
  - Dry mouth [Unknown]
  - Drug ineffective [Unknown]
  - Abdominal discomfort [Unknown]
  - Palpitations [Unknown]
